FAERS Safety Report 4475521-6 (Version None)
Quarter: 2004Q4

REPORT INFORMATION
  Report Type: 
  Country: None (occurrence: None)
  Receive Date: 20041015
  Receipt Date: 20041005
  Transmission Date: 20050328
  Serious: Yes (Life-Threatening, Other)
  Sender: FDA-Public Use
  Company Number: JP-JNJFOC-20040605695

PATIENT
  Sex: Male

DRUGS (10)
  1. ITRIZOLE [Suspect]
     Indication: ONYCHOMYCOSIS
     Route: 049
  2. PRAVASTATIN [Suspect]
     Route: 049
  3. NORVASC [Concomitant]
     Route: 065
  4. B-BLOCKING AGENTS [Concomitant]
     Route: 065
  5. ANTIARRHYTHMIC AGENTS [Concomitant]
     Route: 065
  6. RYTHMODAN [Concomitant]
     Route: 049
  7. BENIDIPINE HYDROCHLORIDE [Concomitant]
     Indication: HYPERTENSION
     Route: 049
  8. ASPIRIN [Concomitant]
     Indication: ANGINA PECTORIS
     Route: 049
  9. BISOPROLOL FUMARATE [Concomitant]
     Indication: HYPERTENSION
     Route: 049
  10. VALSARTAN [Concomitant]
     Indication: HYPERTENSION
     Route: 049

REACTIONS (11)
  - BLOOD GLUCOSE INCREASED [None]
  - CREATININE RENAL CLEARANCE INCREASED [None]
  - DIZZINESS [None]
  - DRUG INTERACTION [None]
  - FALL [None]
  - HEPATOMEGALY [None]
  - HYPERHIDROSIS [None]
  - LOSS OF CONSCIOUSNESS [None]
  - MOTION SICKNESS [None]
  - PULSE ABSENT [None]
  - SHOCK [None]
